FAERS Safety Report 17015255 (Version 2)
Quarter: 2020Q3

REPORT INFORMATION
  Report Type: Spontaneous
  Country: CA (occurrence: CA)
  Receive Date: 20191111
  Receipt Date: 20200723
  Transmission Date: 20201102
  Serious: Yes (Other)
  Sender: FDA-Public Use
  Company Number: CA-SA-2019SA305627

PATIENT

DRUGS (3)
  1. AVAPRO [Suspect]
     Active Substance: IRBESARTAN
     Dosage: UNK
     Dates: start: 201501
  2. IRBESARTAN. [Suspect]
     Active Substance: IRBESARTAN
     Indication: BLOOD PRESSURE ABNORMAL
     Dosage: 75 MG, (1 EVERY 1 DAYS (S))
     Route: 048
     Dates: start: 20141214
  3. AVAPRO [Suspect]
     Active Substance: IRBESARTAN
     Indication: BLOOD PRESSURE ABNORMAL
     Dosage: 75 MG, QD
     Route: 048
     Dates: start: 20100518

REACTIONS (4)
  - Palpitations [Recovered/Resolved]
  - Product substitution issue [Unknown]
  - Nausea [Recovered/Resolved]
  - Vomiting [Recovered/Resolved]
